FAERS Safety Report 16017318 (Version 4)
Quarter: 2021Q3

REPORT INFORMATION
  Report Type: Spontaneous
  Country: US (occurrence: US)
  Receive Date: 20190228
  Receipt Date: 20210923
  Transmission Date: 20211014
  Serious: Yes (Life-Threatening, Hospitalization)
  Sender: FDA-Public Use
  Company Number: US-PFIZER INC-2019087128

PATIENT
  Age: 17 Year
  Sex: Male

DRUGS (1)
  1. XANAX [Suspect]
     Active Substance: ALPRAZOLAM
     Dosage: UNK (CRUSHED)
     Route: 045
     Dates: start: 2017

REACTIONS (4)
  - Loss of consciousness [Recovered/Resolved]
  - Counterfeit product administered [Unknown]
  - Apnoeic attack [Recovered/Resolved]
  - Accidental overdose [Unknown]

NARRATIVE: CASE EVENT DATE: 2017
